FAERS Safety Report 10314495 (Version 3)
Quarter: 2014Q3

REPORT INFORMATION
  Report Type: Spontaneous
  Country: US (occurrence: None)
  Receive Date: 20140717
  Receipt Date: 20140908
  Transmission Date: 20150326
  Serious: Yes (Hospitalization, Other)
  Sender: FDA-Public Use
  Company Number: UNT-2014-003661

PATIENT
  Age: 56 Year
  Sex: Female
  Weight: 51.3 kg

DRUGS (5)
  1. ADCIRCA (TADALFAFIL) [Concomitant]
  2. LETAIRIS [Concomitant]
     Active Substance: AMBRISENTAN
  3. COUMADIN [Concomitant]
     Active Substance: WARFARIN SODIUM
  4. REVATIO (SILDENAFIL CITRATE) [Concomitant]
  5. TYVASO [Suspect]
     Active Substance: TREPROSTINIL
     Indication: PULMONARY ARTERIAL HYPERTENSION
     Route: 055
     Dates: start: 20120413

REACTIONS (5)
  - Stress [None]
  - Hypersensitivity [None]
  - Urticaria [None]
  - Rash [None]
  - Drug dose omission [None]

NARRATIVE: CASE EVENT DATE: 20140706
